FAERS Safety Report 6129275-8 (Version None)
Quarter: 2009Q1

REPORT INFORMATION
  Report Type: 
  Country: None (occurrence: None)
  Receive Date: 20090324
  Receipt Date: 20090316
  Transmission Date: 20090719
  Serious: Yes (Hospitalization, Other)
  Sender: FDA-Public Use
  Company Number: US-BAYER-SE-2006-035313

PATIENT
  Age: 66 Year
  Sex: Male

DRUGS (10)
  1. CAMPATH [Suspect]
     Indication: CHRONIC LYMPHOCYTIC LEUKAEMIA
     Route: 042
     Dates: start: 20060718, end: 20060718
  2. CAMPATH [Suspect]
     Route: 042
     Dates: start: 20060719, end: 20060719
  3. CAMPATH [Suspect]
     Route: 042
     Dates: start: 20060720, end: 20060720
  4. CAMPATH [Suspect]
     Route: 042
     Dates: start: 20060724, end: 20060726
  5. FLUDARA [Suspect]
     Indication: CHRONIC LYMPHOCYTIC LEUKAEMIA
     Route: 042
     Dates: start: 20060724, end: 20060726
  6. CLEMASTINE FUMARATE [Concomitant]
     Indication: PRURITUS
     Dates: start: 20060717
  7. CALCIUM CARBONATE [Concomitant]
     Indication: OSTEOPOROSIS
     Dates: start: 20040108
  8. RISEDRONIC ACID [Concomitant]
     Indication: OSTEOPOROSIS
     Dates: start: 20040819
  9. TRIMETHOPRIM + SULFAMETHOXAZOLE [Concomitant]
     Indication: PROPHYLAXIS
     Dosage: UNK, UNK
     Dates: start: 20060719
  10. PARACETAMOL [Concomitant]

REACTIONS (3)
  - ANAEMIA HAEMOLYTIC AUTOIMMUNE [None]
  - AUTOIMMUNE NEUTROPENIA [None]
  - LEUKOPENIA [None]
